FAERS Safety Report 5528246-X (Version None)
Quarter: 2007Q4

REPORT INFORMATION
  Report Type: 
  Country: None (occurrence: None)
  Receive Date: 20071128
  Receipt Date: 20071116
  Transmission Date: 20080405
  Serious: Yes (Disabling)
  Sender: FDA-Public Use
  Company Number: CA-PFIZER INC-2007088966

PATIENT
  Sex: Female
  Weight: 71.7 kg

DRUGS (11)
  1. CHAMPIX [Suspect]
     Indication: SMOKING CESSATION THERAPY
     Route: 048
  2. TEMAZEPAM [Concomitant]
     Route: 048
  3. CLONAZEPAM [Concomitant]
     Route: 048
  4. ATIVAN [Concomitant]
     Route: 060
  5. LORAZEPAM [Concomitant]
     Route: 048
  6. ALL OTHER THERAPEUTIC PRODUCTS [Concomitant]
     Route: 061
  7. EFFEXOR XR [Concomitant]
     Route: 048
  8. IMOVANE [Concomitant]
     Route: 048
  9. HYDRA-ZIDE [Concomitant]
     Route: 048
  10. TYLENOL W/ CODEINE NO. 3 [Concomitant]
  11. BENZACLIN [Concomitant]
     Route: 061

REACTIONS (11)
  - ACTIVITIES OF DAILY LIVING IMPAIRED [None]
  - ANOREXIA [None]
  - ANXIETY [None]
  - CONSTIPATION [None]
  - CRYING [None]
  - DEPRESSION [None]
  - FLATULENCE [None]
  - HEADACHE [None]
  - HYPERHIDROSIS [None]
  - INSOMNIA [None]
  - NAUSEA [None]
